FAERS Safety Report 5925335-2 (Version None)
Quarter: 2008Q4

REPORT INFORMATION
  Report Type: 
  Country: None (occurrence: None)
  Receive Date: 20081021
  Receipt Date: 20081014
  Transmission Date: 20090506
  Serious: Yes (Other)
  Sender: FDA-Public Use
  Company Number: US-JNJCH-2008051957

PATIENT
  Age: 9 Year
  Sex: Male
  Weight: 33.6 kg

DRUGS (1)
  1. DRAMAMINE [Suspect]
     Indication: VOMITING
     Dosage: TEXT:HALF TABLET ONE TIME
     Route: 048
     Dates: start: 20081011, end: 20081011

REACTIONS (3)
  - LIP SWELLING [None]
  - PRURITUS [None]
  - URTICARIA [None]
